FAERS Safety Report 15202925 (Version 1)
Quarter: 2018Q3

REPORT INFORMATION
  Report Type: Spontaneous
  Country: US (occurrence: US)
  Receive Date: 20180627
  Receipt Date: 20180627
  Transmission Date: 20181010
  Serious: Yes (Hospitalization)
  Sender: FDA-Public Use
  Company Number: None

PATIENT
  Age: 69 Year
  Sex: Male

DRUGS (1)
  1. SERTRALINE [Suspect]
     Active Substance: SERTRALINE HYDROCHLORIDE
     Indication: DEPRESSION
     Route: 048
     Dates: start: 20170925, end: 20180501

REACTIONS (4)
  - Chest discomfort [None]
  - Pain in extremity [None]
  - Serotonin syndrome [None]
  - Angina pectoris [None]

NARRATIVE: CASE EVENT DATE: 20180501
